FAERS Safety Report 4421575-2 (Version None)
Quarter: 2004Q3

REPORT INFORMATION
  Report Type: 
  Country: None (occurrence: None)
  Receive Date: 20040804
  Receipt Date: 20040709
  Transmission Date: 20050211
  Serious: Yes (Other)
  Sender: FDA-Public Use
  Company Number: USA040772187

PATIENT
  Age: 19 Year
  Sex: Female

DRUGS (10)
  1. XIGRIS [Suspect]
     Indication: SEPSIS
     Dates: start: 20040701
  2. DIFLUCAN [Concomitant]
  3. FLAGYL (METRONIDAZOLE BENZOATE) [Concomitant]
  4. LEVOPHED [Concomitant]
  5. DECADRON [Concomitant]
  6. LACRI-LUBE S.O.P. [Concomitant]
  7. PEPCID [Concomitant]
  8. XOPENEX [Concomitant]
  9. HEPARIN [Concomitant]
  10. VANCOMYCIN [Concomitant]

REACTIONS (1)
  - JUGULAR VEIN THROMBOSIS [None]
